FAERS Safety Report 5334844-9 (Version None)
Quarter: 2007Q2

REPORT INFORMATION
  Report Type: 
  Country: None (occurrence: None)
  Receive Date: 20070525
  Receipt Date: 20070516
  Transmission Date: 20071010
  Serious: Yes (Life-Threatening)
  Sender: FDA-Public Use
  Company Number: GB-ROCHE-493789

PATIENT
  Age: 62 Year
  Sex: Female
  Weight: 72 kg

DRUGS (3)
  1. CAPECITABINE [Suspect]
     Indication: COLON CANCER
     Dosage: 2000 MG IN THE MORNING AND 2500 MG IN THE EVENING FOR 14 DAYS OF 21 DAY CYCLE (2500 MG/M2 DAILY DAY+
     Route: 048
     Dates: start: 20070413
  2. BEVACIZUMAB [Suspect]
     Indication: COLON CANCER
     Dosage: 7.5MG/KG EVERY THREE WEEKS AS PER PROTOCOL.
     Route: 042
     Dates: start: 20070412
  3. GAVISCON [Suspect]
     Route: 048
     Dates: start: 20070415, end: 20070415

REACTIONS (1)
  - ARTERIOSPASM CORONARY [None]
